FAERS Safety Report 23264359 (Version 2)
Quarter: 2023Q4

REPORT INFORMATION
  Report Type: Spontaneous
  Country: TW (occurrence: TW)
  Receive Date: 20231205
  Receipt Date: 20231215
  Transmission Date: 20240109
  Serious: Yes (Other)
  Sender: FDA-Public Use
  Company Number: TW-BIOMARINAP-TW-2023-154248

PATIENT

DRUGS (3)
  1. KUVAN [Suspect]
     Active Substance: SAPROPTERIN DIHYDROCHLORIDE
     Indication: Tetrahydrobiopterin deficiency
     Dosage: 100 MILLIGRAM, BID
     Route: 048
     Dates: start: 20081120
  2. BENSERAZIDE HYDROCHLORIDE\LEVODOPA [Concomitant]
     Active Substance: BENSERAZIDE HYDROCHLORIDE\LEVODOPA
     Indication: Tetrahydrobiopterin deficiency
     Dosage: UNK, QID
  3. OXITRIPTAN [Concomitant]
     Active Substance: OXITRIPTAN
     Indication: Tetrahydrobiopterin deficiency

REACTIONS (4)
  - Pituitary cyst [Unknown]
  - Blood prolactin increased [Recovered/Resolved]
  - Menstruation irregular [Unknown]
  - Breast swelling [Unknown]

NARRATIVE: CASE EVENT DATE: 20221229
